FAERS Safety Report 9339455 (Version 2)
Quarter: 2013Q2

REPORT INFORMATION
  Report Type: Spontaneous
  Country: US (occurrence: US)
  Receive Date: 20130610
  Receipt Date: 20130612
  Transmission Date: 20140414
  Serious: No
  Sender: FDA-Public Use
  Company Number: US-009507513-1306USA003033

PATIENT
  Sex: Female

DRUGS (2)
  1. ASMANEX TWISTHALER [Suspect]
     Indication: ASTHMA
     Dosage: 2 INHALATIONS DAILY
     Route: 048
     Dates: start: 201304
  2. PRILOSEC [Concomitant]

REACTIONS (2)
  - Cough [Not Recovered/Not Resolved]
  - Drug dose omission [Unknown]
